FAERS Safety Report 21990361 (Version 1)
Quarter: 2023Q1

REPORT INFORMATION
  Report Type: Spontaneous
  Country: US (occurrence: US)
  Receive Date: 20230214
  Receipt Date: 20230214
  Transmission Date: 20230418
  Serious: No
  Sender: FDA-Public Use
  Company Number: USA--2022-US-000937

PATIENT
  Age: 64 Year
  Sex: Female

DRUGS (3)
  1. BRIMONIDINE TARTRATE [Suspect]
     Active Substance: BRIMONIDINE TARTRATE
     Dosage: 1 DROP TWICE PER DAY
  2. Byvalson tablets [Concomitant]
     Route: 048
  3. Byvalson tablets [Concomitant]
     Route: 048

REACTIONS (4)
  - Dizziness [Recovered/Resolved]
  - Balance disorder [Recovered/Resolved]
  - Blood pressure measurement [Recovered/Resolved]
  - Condition aggravated [Recovered/Resolved]

NARRATIVE: CASE EVENT DATE: 20221112
